FAERS Safety Report 22399021 (Version 2)
Quarter: 2023Q2

REPORT INFORMATION
  Report Type: Spontaneous
  Country: GB (occurrence: GB)
  Receive Date: 20230602
  Receipt Date: 20230622
  Transmission Date: 20230721
  Serious: Yes (Other)
  Sender: FDA-Public Use
  Company Number: GB-MHRA-MED-202305151107005680-HQKYR

PATIENT

DRUGS (12)
  1. IRON [Suspect]
     Active Substance: IRON
     Indication: Product used for unknown indication
     Dosage: UNK
     Route: 065
  2. ASPARAGUS [Suspect]
     Active Substance: ASPARAGUS
     Indication: Product used for unknown indication
     Dosage: UNK
     Route: 065
  3. HERBALS [Suspect]
     Active Substance: HERBALS
     Indication: Product used for unknown indication
     Dosage: UNK
     Route: 065
  4. HERBALS [Suspect]
     Active Substance: HERBALS
     Indication: Product used for unknown indication
     Dosage: UNK
     Route: 065
  5. HERBALS [Suspect]
     Active Substance: HERBALS
     Indication: Product used for unknown indication
     Dosage: UNK
     Route: 065
  6. NUX VOMICA [Suspect]
     Active Substance: STRYCHNOS NUX-VOMICA SEED
     Indication: Product used for unknown indication
     Dosage: UNK
     Route: 065
  7. WITHANIA SOMNIFERA ROOT [Suspect]
     Active Substance: WITHANIA SOMNIFERA ROOT
     Indication: Product used for unknown indication
     Dosage: UNK
     Route: 065
  8. HERBALS\NUTMEG [Suspect]
     Active Substance: HERBALS\NUTMEG
     Indication: Product used for unknown indication
     Dosage: UNK
     Route: 065
  9. GINGER [Suspect]
     Active Substance: GINGER
     Indication: Product used for unknown indication
     Dosage: UNK
     Route: 065
  10. LEVOFLOXACIN [Suspect]
     Active Substance: LEVOFLOXACIN
     Indication: Product used for unknown indication
     Dosage: UNK
     Route: 065
  11. CINNAMON\HERBALS [Suspect]
     Active Substance: CINNAMON\HERBALS
     Indication: Product used for unknown indication
     Dosage: UNK
     Route: 065
  12. HERBALS [Suspect]
     Active Substance: HERBALS
     Indication: Product used for unknown indication
     Dosage: UNK
     Route: 065

REACTIONS (2)
  - Joint swelling [Recovering/Resolving]
  - Drug hypersensitivity [Unknown]
